FAERS Safety Report 13858515 (Version 1)
Quarter: 2017Q3

REPORT INFORMATION
  Report Type: Report from Study
  Country: None (occurrence: US)
  Receive Date: 20170811
  Receipt Date: 20170811
  Transmission Date: 20171127
  Serious: Yes (Other)
  Sender: FDA-Public Use
  Company Number: US-ABBVIE-17K-163-1911102-00

PATIENT
  Age: 32 Year
  Sex: Female

DRUGS (9)
  1. HUMIRA [Suspect]
     Active Substance: ADALIMUMAB
     Route: 058
     Dates: start: 201607, end: 201612
  2. CYCLOBENZAPRINE. [Concomitant]
     Active Substance: CYCLOBENZAPRINE
     Indication: PAIN
  3. HUMIRA [Suspect]
     Active Substance: ADALIMUMAB
     Indication: PSORIASIS
     Route: 058
     Dates: start: 201603, end: 201607
  4. HUMIRA [Suspect]
     Active Substance: ADALIMUMAB
     Route: 058
     Dates: start: 201701, end: 201705
  5. STELARA [Concomitant]
     Active Substance: USTEKINUMAB
     Indication: PSORIASIS
  6. TYLENOL WITH CODEINE [Concomitant]
     Active Substance: ACETAMINOPHEN\CODEINE PHOSPHATE
     Indication: PAIN
  7. YASMIN [Concomitant]
     Active Substance: DROSPIRENONE\ETHINYL ESTRADIOL
     Indication: CONTRACEPTION
  8. VITAMIN D [Concomitant]
     Active Substance: CHOLECALCIFEROL
     Indication: VITAMIN SUPPLEMENTATION
  9. METHOTREXATE. [Concomitant]
     Active Substance: METHOTREXATE
     Indication: PSORIASIS

REACTIONS (48)
  - Musculoskeletal pain [Unknown]
  - Back pain [Unknown]
  - Abdominal pain upper [Unknown]
  - Constipation [Unknown]
  - Diarrhoea [Unknown]
  - White blood cell count increased [Recovered/Resolved]
  - Gastric haemorrhage [Not Recovered/Not Resolved]
  - Fibromyalgia [Not Recovered/Not Resolved]
  - Pharyngitis [Recovered/Resolved]
  - Pyrexia [Recovered/Resolved]
  - Sinus congestion [Recovered/Resolved]
  - Depression [Unknown]
  - Injection site bruising [Recovered/Resolved]
  - Decreased appetite [Unknown]
  - White blood cell count increased [Unknown]
  - Pain [Unknown]
  - Respiratory tract congestion [Recovered/Resolved]
  - Myalgia [Unknown]
  - Psoriasis [Not Recovered/Not Resolved]
  - Muscle spasms [Unknown]
  - Respiratory tract infection [Recovered/Resolved]
  - Ear infection [Recovered/Resolved]
  - Insomnia [Unknown]
  - Procedural pain [Recovered/Resolved]
  - Nausea [Recovered/Resolved]
  - Tonsillar hypertrophy [Recovered/Resolved]
  - Pain in extremity [Unknown]
  - Injection site pain [Recovered/Resolved]
  - Migraine [Recovered/Resolved]
  - Photosensitivity reaction [Unknown]
  - Anxiety [Unknown]
  - Joint range of motion decreased [Unknown]
  - Musculoskeletal stiffness [Unknown]
  - Drug ineffective [Unknown]
  - Abdominal pain [Recovered/Resolved]
  - Gallbladder enlargement [Recovered/Resolved]
  - Rectal haemorrhage [Not Recovered/Not Resolved]
  - Gait disturbance [Recovering/Resolving]
  - Fatigue [Unknown]
  - Bone pain [Unknown]
  - Nasopharyngitis [Unknown]
  - Abdominal hernia [Not Recovered/Not Resolved]
  - Abdominal discomfort [Recovered/Resolved]
  - Nasopharyngitis [Not Recovered/Not Resolved]
  - Psoriatic arthropathy [Not Recovered/Not Resolved]
  - Spinal pain [Unknown]
  - Arthralgia [Unknown]
  - Pain [Not Recovered/Not Resolved]

NARRATIVE: CASE EVENT DATE: 2016
